FAERS Safety Report 15171491 (Version 2)
Quarter: 2018Q3

REPORT INFORMATION
  Report Type: Spontaneous
  Country: US (occurrence: US)
  Receive Date: 20180720
  Receipt Date: 20180823
  Transmission Date: 20181010
  Serious: No
  Sender: FDA-Public Use
  Company Number: US-PFIZER INC-2018285544

PATIENT
  Age: 46 Year
  Sex: Male

DRUGS (1)
  1. SODIUM CHLORIDE. [Suspect]
     Active Substance: SODIUM CHLORIDE
     Indication: LESION EXCISION
     Dosage: 2 ML, SINGLE (ONE TIME, ONCE)
     Dates: start: 20180713, end: 20180713

REACTIONS (2)
  - Drug ineffective for unapproved indication [Unknown]
  - Injection site discolouration [Unknown]

NARRATIVE: CASE EVENT DATE: 20180713
